FAERS Safety Report 9264257 (Version 1)
Quarter: 2013Q2

REPORT INFORMATION
  Report Type: Spontaneous
  Country: US (occurrence: US)
  Receive Date: 20130430
  Receipt Date: 20130430
  Transmission Date: 20140414
  Serious: Yes (Other)
  Sender: FDA-Public Use
  Company Number: GXBR2013US000968

PATIENT
  Sex: Female

DRUGS (1)
  1. LORATADINE TABLETS USP [Suspect]
     Dosage: UNK MG, UNK
     Route: 048

REACTIONS (4)
  - Cerebrovascular accident [Recovering/Resolving]
  - Aphasia [Recovered/Resolved]
  - Agraphia [Recovered/Resolved]
  - Acalculia [Unknown]
